FAERS Safety Report 5749622-6 (Version None)
Quarter: 2008Q2

REPORT INFORMATION
  Report Type: 
  Country: None (occurrence: None)
  Receive Date: 20080522
  Receipt Date: 20080522
  Transmission Date: 20081010
  Serious: Yes (Life-Threatening)
  Sender: FDA-Public Use
  Company Number: None

PATIENT
  Age: 53 Year
  Sex: Male
  Weight: 99 kg

DRUGS (1)
  1. DIPRIVAN [Suspect]
     Indication: ENDOTRACHEAL INTUBATION
     Dosage: 100 MG IV BOLUS 80 MG IV BOLUS
     Route: 040

REACTIONS (5)
  - ANAESTHETIC COMPLICATION [None]
  - CARDIAC ARREST [None]
  - HYPOTENSION [None]
  - INCORRECT DOSE ADMINISTERED [None]
  - MEDICATION ERROR [None]
